FAERS Safety Report 10723939 (Version 5)
Quarter: 2015Q4

REPORT INFORMATION
  Report Type: Report from Study
  Country: AU (occurrence: AU)
  Receive Date: 20150120
  Receipt Date: 20151012
  Transmission Date: 20160304
  Serious: Yes (Hospitalization, Other)
  Sender: FDA-Public Use
  Company Number: PHHY2015AU004349

PATIENT
  Age: 27 Year
  Sex: Male

DRUGS (3)
  1. CHLORAL [Concomitant]
     Active Substance: CHLORAL
     Indication: PRODUCT USED FOR UNKNOWN INDICATION
     Route: 065
  2. CLOZARIL [Suspect]
     Active Substance: CLOZAPINE
     Dosage: TITRATED DOSE
     Route: 048
     Dates: start: 20141217, end: 20150121
  3. CLOZARIL [Suspect]
     Active Substance: CLOZAPINE
     Indication: SCHIZOPHRENIA
     Dosage: 300 (UNIT UNSPECIFIED)
     Route: 048
     Dates: start: 20140508, end: 20141130

REACTIONS (8)
  - Schistosomiasis [Unknown]
  - Lower urinary tract symptoms [Unknown]
  - Eosinophilia [Recovered/Resolved]
  - Neutrophil count decreased [Recovered/Resolved]
  - Self injurious behaviour [Unknown]
  - Neutrophil count decreased [Recovered/Resolved]
  - Mental impairment [Unknown]
  - White blood cell count increased [Recovered/Resolved]

NARRATIVE: CASE EVENT DATE: 20141229
